FAERS Safety Report 18857908 (Version 1)
Quarter: 2021Q1

REPORT INFORMATION
  Report Type: Report from Study
  Country: US (occurrence: US)
  Receive Date: 20210208
  Receipt Date: 20210208
  Transmission Date: 20210420
  Serious: Yes (Other)
  Sender: FDA-Public Use
  Company Number: US-TAKEDA-2021TUS005697

PATIENT
  Age: 33 Year
  Sex: Male

DRUGS (1)
  1. 489 (LISDEXAMFETAMINE DIMESYLATE) [Suspect]
     Active Substance: LISDEXAMFETAMINE DIMESYLATE
     Indication: PRODUCT USED FOR UNKNOWN INDICATION
     Dosage: 60 MILLIGRAM, QD
     Route: 050

REACTIONS (5)
  - Lyme disease [Unknown]
  - Illness [Unknown]
  - Ulcer [Unknown]
  - Autoimmune disorder [Unknown]
  - Malaise [Unknown]

NARRATIVE: CASE EVENT DATE: 201908
